FAERS Safety Report 8770794 (Version 2)
Quarter: 2013Q4

REPORT INFORMATION
  Report Type: Spontaneous
  Country: US (occurrence: US)
  Receive Date: 20120906
  Receipt Date: 20131009
  Transmission Date: 20140711
  Serious: Yes (Hospitalization, Other)
  Sender: FDA-Public Use
  Company Number: US-ASTRAZENECA-2011SE01087

PATIENT
  Age: 54 Year
  Sex: Female
  Weight: 72.6 kg

DRUGS (42)
  1. SEROQUEL XR [Suspect]
     Indication: BIPOLAR DISORDER
     Route: 048
     Dates: start: 2007
  2. SEROQUEL XR [Suspect]
     Indication: ANXIETY
     Route: 048
     Dates: start: 2007
  3. SEROQUEL XR [Suspect]
     Indication: DEPRESSION
     Route: 048
     Dates: start: 2007
  4. SEROQUEL XR [Suspect]
     Indication: BIPOLAR DISORDER
     Route: 048
     Dates: start: 20101105
  5. SEROQUEL XR [Suspect]
     Indication: ANXIETY
     Route: 048
     Dates: start: 20101105
  6. SEROQUEL XR [Suspect]
     Indication: DEPRESSION
     Route: 048
     Dates: start: 20101105
  7. SEROQUEL XR [Suspect]
     Indication: BIPOLAR DISORDER
     Route: 048
  8. SEROQUEL XR [Suspect]
     Indication: ANXIETY
     Route: 048
  9. SEROQUEL XR [Suspect]
     Indication: DEPRESSION
     Route: 048
  10. SEROQUEL XR [Suspect]
     Indication: BIPOLAR DISORDER
     Dosage: 2 TABLETS AFTERNOON
     Route: 048
  11. SEROQUEL XR [Suspect]
     Indication: ANXIETY
     Dosage: 2 TABLETS AFTERNOON
     Route: 048
  12. SEROQUEL XR [Suspect]
     Indication: DEPRESSION
     Dosage: 2 TABLETS AFTERNOON
     Route: 048
  13. SEROQUEL XR [Suspect]
     Indication: BIPOLAR DISORDER
     Route: 048
  14. SEROQUEL XR [Suspect]
     Indication: ANXIETY
     Route: 048
  15. SEROQUEL XR [Suspect]
     Indication: DEPRESSION
     Route: 048
  16. SEROQUEL XR [Suspect]
     Indication: BIPOLAR DISORDER
     Route: 048
  17. SEROQUEL XR [Suspect]
     Indication: ANXIETY
     Route: 048
  18. SEROQUEL XR [Suspect]
     Indication: DEPRESSION
     Route: 048
  19. SEROQUEL XR [Suspect]
     Indication: BIPOLAR DISORDER
     Route: 048
     Dates: start: 201206
  20. SEROQUEL XR [Suspect]
     Indication: ANXIETY
     Route: 048
     Dates: start: 201206
  21. SEROQUEL XR [Suspect]
     Indication: DEPRESSION
     Route: 048
     Dates: start: 201206
  22. SEROQUEL XR [Suspect]
     Indication: BIPOLAR DISORDER
     Route: 048
     Dates: end: 2005
  23. SEROQUEL XR [Suspect]
     Indication: ANXIETY
     Route: 048
     Dates: end: 2005
  24. SEROQUEL XR [Suspect]
     Indication: DEPRESSION
     Route: 048
     Dates: end: 2005
  25. SEROQUEL XR [Suspect]
     Indication: BIPOLAR DISORDER
     Route: 048
  26. SEROQUEL XR [Suspect]
     Indication: ANXIETY
     Route: 048
  27. SEROQUEL XR [Suspect]
     Indication: DEPRESSION
     Route: 048
  28. SEROQUEL XR [Suspect]
     Indication: BIPOLAR DISORDER
     Route: 048
     Dates: start: 2006
  29. SEROQUEL XR [Suspect]
     Indication: ANXIETY
     Route: 048
     Dates: start: 2006
  30. SEROQUEL XR [Suspect]
     Indication: DEPRESSION
     Route: 048
     Dates: start: 2006
  31. SEROQUEL XR [Suspect]
     Indication: BIPOLAR DISORDER
     Route: 048
  32. SEROQUEL XR [Suspect]
     Indication: ANXIETY
     Route: 048
  33. SEROQUEL XR [Suspect]
     Indication: DEPRESSION
     Route: 048
  34. CYMBALTA [Concomitant]
     Indication: DEPRESSION
     Route: 048
     Dates: start: 20081209
  35. GEODON [Concomitant]
     Indication: BIPOLAR DISORDER
     Route: 048
     Dates: start: 20100209
  36. WELLBUTRIN [Concomitant]
     Indication: DEPRESSION
     Route: 048
     Dates: start: 20101105
  37. SPIRONOLACTONE [Concomitant]
  38. CELEXA [Concomitant]
     Indication: BIPOLAR DISORDER
  39. VISTARIL [Concomitant]
     Indication: NERVOUSNESS
  40. FLEXERIL [Concomitant]
     Indication: MUSCLE RELAXANT THERAPY
  41. LORTAB [Concomitant]
     Indication: PAIN
  42. IMITREX [Concomitant]
     Indication: MIGRAINE

REACTIONS (9)
  - Adrenal neoplasm [Not Recovered/Not Resolved]
  - Cushing^s syndrome [Unknown]
  - Adrenal disorder [Unknown]
  - Weight increased [Recovering/Resolving]
  - Migraine [Unknown]
  - Memory impairment [Unknown]
  - Insomnia [Unknown]
  - Affect lability [Unknown]
  - Panic attack [Unknown]
